FAERS Safety Report 15961362 (Version 1)
Quarter: 2019Q1

REPORT INFORMATION
  Report Type: Spontaneous
  Country: US (occurrence: US)
  Receive Date: 20190214
  Receipt Date: 20190214
  Transmission Date: 20190417
  Serious: Yes (Other)
  Sender: FDA-Public Use
  Company Number: US-LEXICON PHARMACEUTICALS, INC-19-1606-00156

PATIENT
  Sex: Male

DRUGS (2)
  1. TELOTRISTAT ETHYL [Suspect]
     Active Substance: TELOTRISTAT ETHYL
     Indication: CARCINOID TUMOUR
     Route: 048
     Dates: start: 20180405
  2. LANREOTIDE [Concomitant]
     Active Substance: LANREOTIDE

REACTIONS (3)
  - Pruritus [Unknown]
  - Radiotherapy [Not Recovered/Not Resolved]
  - Platelet count decreased [Unknown]
